FAERS Safety Report 24380786 (Version 1)
Quarter: 2024Q3

REPORT INFORMATION
  Report Type: Spontaneous
  Country: US (occurrence: US)
  Receive Date: 20240930
  Receipt Date: 20240930
  Transmission Date: 20241016
  Serious: Yes (Hospitalization)
  Sender: CORCEPT
  Company Number: US-CORCEPT THERAPEUTICS INC.-US-2024CRT002815

PATIENT

DRUGS (1)
  1. KORLYM [Suspect]
     Active Substance: MIFEPRISTONE
     Indication: Hyperadrenocorticism
     Dosage: 300 MG
     Route: 048
     Dates: start: 202403

REACTIONS (2)
  - Localised infection [Not Recovered/Not Resolved]
  - Hypokalaemia [Not Recovered/Not Resolved]

NARRATIVE: CASE EVENT DATE: 20240901
